FAERS Safety Report 16339781 (Version 3)
Quarter: 2019Q3

REPORT INFORMATION
  Report Type: Report from Study
  Country: AU (occurrence: AU)
  Receive Date: 20190521
  Receipt Date: 20190920
  Transmission Date: 20191004
  Serious: Yes (Other)
  Sender: FDA-Public Use
  Company Number: AU-GILEAD-2019-0391768

PATIENT
  Age: 43 Year
  Sex: Male
  Weight: 168 kg

DRUGS (2)
  1. SOFOSBUVIR W/VELPATASVIR/VOXILAPREVIR [Suspect]
     Active Substance: SOFOSBUVIR\VELPATASVIR\VOXILAPREVIR
     Indication: CHRONIC HEPATITIS C
     Dosage: 400 MG/100 MG/100 MG
     Route: 065
     Dates: start: 20180712, end: 20180920
  2. VITAMINS NOS [Concomitant]
     Active Substance: VITAMINS

REACTIONS (2)
  - Treatment failure [Unknown]
  - Genotype drug resistance test positive [Not Recovered/Not Resolved]
